FAERS Safety Report 4405064-7 (Version None)
Quarter: 2004Q3

REPORT INFORMATION
  Report Type: 
  Country: None (occurrence: None)
  Receive Date: 20040716
  Receipt Date: 20040706
  Transmission Date: 20050211
  Serious: Yes (Hospitalization)
  Sender: FDA-Public Use
  Company Number: RENA-11091

PATIENT
  Age: 50 Year
  Sex: Female

DRUGS (1)
  1. PHOSBLOCK - 250 MG TABLET [Suspect]
     Indication: HYPERPHOSPHATAEMIA
     Dosage: 3 G DAILY PO
     Route: 048

REACTIONS (1)
  - INTESTINAL OBSTRUCTION [None]
